FAERS Safety Report 6504244-4 (Version None)
Quarter: 2009Q4

REPORT INFORMATION
  Report Type: 
  Country: None (occurrence: None)
  Receive Date: 20091215
  Receipt Date: 20091203
  Transmission Date: 20100525
  Serious: Yes (Other)
  Sender: FDA-Public Use
  Company Number: 2009SP023920

PATIENT
  Age: 31 Year
  Sex: Female
  Weight: 74 kg

DRUGS (3)
  1. IMPLANON [Suspect]
     Indication: CONTRACEPTION
     Dosage: 68 MG; UNK; SC
     Route: 058
     Dates: start: 20090804
  2. CIPROFLOXACIN HCL [Concomitant]
  3. SERTRALINE HCL [Concomitant]

REACTIONS (5)
  - IMPLANT SITE ERYTHEMA [None]
  - IMPLANT SITE INFLAMMATION [None]
  - IMPLANT SITE PRURITUS [None]
  - PYELONEPHRITIS ACUTE [None]
  - WEIGHT INCREASED [None]
